FAERS Safety Report 4536826-3 (Version None)
Quarter: 2004Q4

REPORT INFORMATION
  Report Type: 
  Country: None (occurrence: None)
  Receive Date: 20041220
  Receipt Date: 20041207
  Transmission Date: 20050328
  Serious: Yes (Other)
  Sender: FDA-Public Use
  Company Number: 2004077999

PATIENT
  Age: 86 Year
  Sex: Male
  Weight: 72.5755 kg

DRUGS (2)
  1. LIPITOR [Suspect]
     Indication: TRANSIENT ISCHAEMIC ATTACK
     Dosage: 10 MG (10 MG, DAILY) ORAL
     Route: 048
     Dates: start: 20030801, end: 20040401
  2. CLOPIDOGREL BISULFATE [Concomitant]

REACTIONS (2)
  - MYOCARDIAL INFARCTION [None]
  - VISUAL ACUITY REDUCED [None]
